FAERS Safety Report 9251234 (Version 2)
Quarter: 2014Q1

REPORT INFORMATION
  Report Type: Spontaneous
  Country: US (occurrence: US)
  Receive Date: 20130424
  Receipt Date: 20140211
  Transmission Date: 20141002
  Serious: Yes (Hospitalization, Disabling, Other)
  Sender: FDA-Public Use
  Company Number: US-ASTRAZENECA-2013SE27438

PATIENT
  Age: 45 Year
  Sex: Female
  Weight: 68 kg

DRUGS (22)
  1. NEXIUM [Suspect]
     Indication: GASTROOESOPHAGEAL REFLUX DISEASE
     Route: 048
  2. NEXIUM [Suspect]
     Indication: BARRETT^S OESOPHAGUS
     Route: 048
  3. NEXIUM [Suspect]
     Indication: GASTROOESOPHAGEAL REFLUX DISEASE
     Route: 048
     Dates: start: 1993
  4. NEXIUM [Suspect]
     Indication: BARRETT^S OESOPHAGUS
     Route: 048
     Dates: start: 1993
  5. NEXIUM [Suspect]
     Indication: GASTROOESOPHAGEAL REFLUX DISEASE
     Route: 048
     Dates: start: 20110507
  6. NEXIUM [Suspect]
     Indication: BARRETT^S OESOPHAGUS
     Route: 048
     Dates: start: 20110507
  7. PRILOSEC [Suspect]
     Indication: GASTROOESOPHAGEAL REFLUX DISEASE
     Route: 048
     Dates: start: 1993
  8. PRILOSEC [Suspect]
     Indication: BARRETT^S OESOPHAGUS
     Route: 048
     Dates: start: 1993
  9. PREVACID [Concomitant]
     Indication: GASTROOESOPHAGEAL REFLUX DISEASE
     Dates: start: 1993
  10. PREVACID [Concomitant]
     Indication: BARRETT^S OESOPHAGUS
     Dates: start: 1993
  11. PROTONIX [Concomitant]
     Indication: GASTROOESOPHAGEAL REFLUX DISEASE
     Dates: start: 1993
  12. PROTONIX [Concomitant]
     Indication: BARRETT^S OESOPHAGUS
     Dates: start: 1993
  13. ACIPHEX [Concomitant]
     Indication: GASTROOESOPHAGEAL REFLUX DISEASE
     Dates: start: 1993
  14. ACIPHEX [Concomitant]
     Indication: BARRETT^S OESOPHAGUS
     Dates: start: 1993
  15. TAGAMET [Concomitant]
     Indication: GASTROOESOPHAGEAL REFLUX DISEASE
  16. TAGAMET [Concomitant]
     Indication: BARRETT^S OESOPHAGUS
  17. CARAFATE [Concomitant]
     Indication: GASTROOESOPHAGEAL REFLUX DISEASE
  18. METHADONE [Concomitant]
     Indication: PAIN
  19. REQUIP [Concomitant]
     Indication: RESTLESS LEGS SYNDROME
  20. OXYCODONE [Concomitant]
     Indication: PAIN
  21. ZOLOFT [Concomitant]
     Indication: DEPRESSION
  22. CALCIUM [Concomitant]

REACTIONS (17)
  - Spinal compression fracture [Unknown]
  - Anaemia [Unknown]
  - Osteoarthritis [Unknown]
  - Connective tissue disorder [Unknown]
  - Bladder disorder [Unknown]
  - Transient ischaemic attack [Unknown]
  - Musculoskeletal discomfort [Unknown]
  - Osteoporosis [Unknown]
  - Lupus-like syndrome [Unknown]
  - Bone disorder [Unknown]
  - Multiple fractures [Unknown]
  - Aortic disorder [Unknown]
  - Arthritis [Unknown]
  - Calcium deficiency [Unknown]
  - Arterial disorder [Unknown]
  - Osteopenia [Unknown]
  - Liver disorder [Unknown]
